FAERS Safety Report 14790442 (Version 2)
Quarter: 2018Q2

REPORT INFORMATION
  Report Type: Spontaneous
  Country: DE (occurrence: DE)
  Receive Date: 20180423
  Receipt Date: 20180511
  Transmission Date: 20180711
  Serious: Yes (Death, Hospitalization, Other)
  Sender: FDA-Public Use
  Company Number: DE-BAUSCH-BL-2018-010342

PATIENT
  Age: 75 Year
  Sex: Male

DRUGS (4)
  1. RIBAVIRIN. [Suspect]
     Active Substance: RIBAVIRIN
     Indication: HEPATITIS C
     Route: 065
     Dates: start: 201510
  2. TACROLIMUS. [Suspect]
     Active Substance: TACROLIMUS
     Indication: IMMUNOSUPPRESSANT DRUG THERAPY
     Route: 065
  3. PREDNISONE. [Suspect]
     Active Substance: PREDNISONE
     Indication: IMMUNOSUPPRESSANT DRUG THERAPY
     Route: 065
  4. LEDIPASVIR/SOFOSBUVIR [Suspect]
     Active Substance: LEDIPASVIR\SOFOSBUVIR
     Indication: HEPATITIS C
     Route: 065
     Dates: start: 201510

REACTIONS (14)
  - Ascites [Unknown]
  - Renal failure [Unknown]
  - Anaemia [Not Recovered/Not Resolved]
  - Infection [Unknown]
  - Abdominal pain [Unknown]
  - Pyrexia [Unknown]
  - Pneumonia [Unknown]
  - Renal impairment [Unknown]
  - Asthenia [Unknown]
  - Hepatocellular carcinoma [Fatal]
  - Peritonitis bacterial [Unknown]
  - Oedema peripheral [Unknown]
  - Glomerular filtration rate decreased [Unknown]
  - Decreased appetite [Unknown]
